FAERS Safety Report 18624829 (Version 2)
Quarter: 2020Q4

REPORT INFORMATION
  Report Type: Spontaneous
  Country: CA (occurrence: CA)
  Receive Date: 20201216
  Receipt Date: 20201222
  Transmission Date: 20210114
  Serious: Yes (Other)
  Sender: FDA-Public Use
  Company Number: CA-JNJFOC-20201223144

PATIENT
  Age: 56 Year
  Sex: Female

DRUGS (13)
  1. TOPAMAX [Suspect]
     Active Substance: TOPIRAMATE
     Indication: MIGRAINE
     Route: 048
  2. ONDANSETRON [Interacting]
     Active Substance: ONDANSETRON
     Indication: MIGRAINE
     Route: 065
  3. PERINDOPRIL ERBUMINE. [Interacting]
     Active Substance: PERINDOPRIL ERBUMINE
     Indication: NEPHROPATHY TOXIC
  4. DOMPERIDONE [Concomitant]
     Active Substance: DOMPERIDONE
     Indication: MIGRAINE
     Route: 065
  5. OXYCODONE [Interacting]
     Active Substance: OXYCODONE
     Indication: MIGRAINE
     Route: 065
  6. GABAPENTIN. [Interacting]
     Active Substance: GABAPENTIN
     Indication: MIGRAINE
     Route: 065
  7. PROPRANOLOL [Interacting]
     Active Substance: PROPRANOLOL HYDROCHLORIDE
     Indication: PRODUCT USED FOR UNKNOWN INDICATION
     Route: 065
  8. AMITRIPTYLINE [Interacting]
     Active Substance: AMITRIPTYLINE
     Indication: MIGRAINE
     Route: 065
  9. PERINDOPRIL ERBUMINE. [Interacting]
     Active Substance: PERINDOPRIL ERBUMINE
     Indication: HYPERTENSION
  10. PERINDOPRIL ERBUMINE. [Interacting]
     Active Substance: PERINDOPRIL ERBUMINE
     Route: 065
  11. DULOXETINE. [Interacting]
     Active Substance: DULOXETINE
     Indication: MIGRAINE
     Route: 065
  12. MIRTAZAPINE. [Interacting]
     Active Substance: MIRTAZAPINE
     Indication: MIGRAINE
     Route: 065
  13. CANDESARTAN CILEXETIL. [Interacting]
     Active Substance: CANDESARTAN CILEXETIL
     Indication: MIGRAINE
     Route: 065

REACTIONS (11)
  - Depressed level of consciousness [Unknown]
  - Drug interaction [Unknown]
  - Serotonin syndrome [Unknown]
  - Drug ineffective [Unknown]
  - Electrocardiogram QT prolonged [Unknown]
  - Nephropathy toxic [Unknown]
  - Fall [Unknown]
  - Hypertension [Unknown]
  - Drug intolerance [Unknown]
  - Mental disorder [Unknown]
  - Toxicity to various agents [Unknown]
